FAERS Safety Report 4698516-6 (Version None)
Quarter: 2005Q2

REPORT INFORMATION
  Report Type: 
  Country: None (occurrence: None)
  Receive Date: 20050621
  Receipt Date: 20041108
  Transmission Date: 20051028
  Serious: Yes (Death)
  Sender: FDA-Public Use
  Company Number: EWC041141264

PATIENT
  Age: 64 Year
  Sex: Male
  Weight: 72 kg

DRUGS (6)
  1. TADALAFIL [Suspect]
     Indication: ERECTILE DYSFUNCTION
     Dosage: 20 MG/1 AS NEEDED
     Dates: start: 20040105
  2. CILAZAPRIL [Concomitant]
  3. GLYBURIDE [Concomitant]
  4. T4 (LEVOTHYROXINE SODIUM) [Concomitant]
  5. ASPIRIN [Concomitant]
  6. PRAVASTATIN SODIUM [Concomitant]

REACTIONS (1)
  - HAEMORRHAGIC STROKE [None]
